FAERS Safety Report 5483286-4 (Version None)
Quarter: 2007Q4

REPORT INFORMATION
  Report Type: 
  Country: None (occurrence: None)
  Receive Date: 20071012
  Receipt Date: 20071003
  Transmission Date: 20080405
  Serious: Yes (Other)
  Sender: FDA-Public Use
  Company Number: PHEH2007US13318

PATIENT

DRUGS (3)
  1. ACE INHIBITOR NOS [Concomitant]
  2. ANGIOTENSIN II ANTAGONISTS [Concomitant]
  3. TEKTURNA [Suspect]

REACTIONS (1)
  - BLOOD CREATININE INCREASED [None]
